FAERS Safety Report 7736636-X (Version None)
Quarter: 2011Q3

REPORT INFORMATION
  Report Type: 
  Country: None (occurrence: None)
  Receive Date: 20110902
  Receipt Date: 20110818
  Transmission Date: 20111222
  Serious: Yes (Hospitalization)
  Sender: FDA-Public Use
  Company Number: 2011MA012613

PATIENT
  Age: 72 Year
  Sex: Female

DRUGS (2)
  1. SORIATANE [Suspect]
     Dosage: ;PO
     Route: 048
     Dates: start: 20110715, end: 20110727
  2. IBUPROFEN [Suspect]
     Indication: PSORIASIS
     Dosage: ;PO
     Dates: start: 20110301, end: 20110301

REACTIONS (1)
  - PUSTULAR PSORIASIS [None]
